FAERS Safety Report 10706814 (Version 1)
Quarter: 2015Q1

REPORT INFORMATION
  Report Type: Spontaneous
  Country: US (occurrence: None)
  Receive Date: 20150112
  Receipt Date: 20150112
  Transmission Date: 20150721
  Serious: Yes (Disabling, Other)
  Sender: FDA-Public Use
  Company Number: None

PATIENT
  Age: 33 Year
  Sex: Male
  Weight: 106.6 kg

DRUGS (1)
  1. CIPROFLOXACIN. [Suspect]
     Active Substance: CIPROFLOXACIN
     Indication: URINARY TRACT INFECTION
     Dosage: 1 PILL TWICE DAILY TAKEN BY MOUTH
     Route: 048
     Dates: start: 20150104, end: 20150109

REACTIONS (16)
  - Insomnia [None]
  - Anxiety [None]
  - Back pain [None]
  - Dissociation [None]
  - Depression [None]
  - Social avoidant behaviour [None]
  - Palpitations [None]
  - Neck pain [None]
  - Panic attack [None]
  - Irritability [None]
  - Dyspnoea [None]
  - Musculoskeletal stiffness [None]
  - Condition aggravated [None]
  - Dizziness [None]
  - Post-traumatic stress disorder [None]
  - Asthenia [None]

NARRATIVE: CASE EVENT DATE: 20150105
